FAERS Safety Report 14723228 (Version 1)
Quarter: 2018Q2

REPORT INFORMATION
  Report Type: Spontaneous
  Country: US (occurrence: US)
  Receive Date: 20180405
  Receipt Date: 20180405
  Transmission Date: 20180711
  Serious: No
  Sender: FDA-Public Use
  Company Number: US-MYLANLABS-2018M1016643

PATIENT
  Sex: Male

DRUGS (1)
  1. LIDOCAINE PATCH [Suspect]
     Active Substance: LIDOCAINE
     Indication: PAIN

REACTIONS (4)
  - Off label use [Unknown]
  - Product quality issue [Unknown]
  - Product adhesion issue [Unknown]
  - Drug ineffective [Unknown]
